FAERS Safety Report 11374771 (Version 1)
Quarter: 2015Q3

REPORT INFORMATION
  Report Type: Spontaneous
  Country: US (occurrence: None)
  Receive Date: 20150812
  Receipt Date: 20150812
  Transmission Date: 20151125
  Serious: Yes (Hospitalization)
  Sender: FDA-Public Use
  Company Number: None

PATIENT
  Age: 51 Year
  Sex: Male
  Weight: 96.62 kg

DRUGS (23)
  1. FOLIC ACID. [Concomitant]
     Active Substance: FOLIC ACID
  2. FOSFOMYCIN [Concomitant]
     Active Substance: FOSFOMYCIN
  3. VITAMIN D [Concomitant]
     Active Substance: CHOLECALCIFEROL
  4. LACTULOSEM MAGNESIUM [Concomitant]
  5. ENSUREM POLYETHYLENE GLYCOL [Concomitant]
  6. SIMETHICONE (DIMETHICONE) [Concomitant]
     Active Substance: DIMETHICONE
  7. RIFAXIMIN [Concomitant]
     Active Substance: RIFAXIMIN
  8. CIPRO [Concomitant]
     Active Substance: CIPROFLOXACIN HYDROCHLORIDE
  9. CIALIS [Concomitant]
     Active Substance: TADALAFIL
  10. FLAGYL [Concomitant]
     Active Substance: METRONIDAZOLE\METRONIDAZOLE HYDROCHLORIDE
  11. NICODERM CQ [Concomitant]
     Active Substance: NICOTINE
  12. SPIRONOLACTONE. [Concomitant]
     Active Substance: SPIRONOLACTONE
  13. LINEZOLID. [Concomitant]
     Active Substance: LINEZOLID
  14. BUMEX [Concomitant]
     Active Substance: BUMETANIDE
  15. ALBUMIN [Concomitant]
     Active Substance: ALBUMIN (HUMAN)
  16. HARVONI [Suspect]
     Active Substance: LEDIPASVIR\SOFOSBUVIR
     Indication: HEPATITIS C
     Dosage: 90/400 MG
     Route: 048
     Dates: start: 20150209, end: 20150504
  17. CALCIUM [Concomitant]
     Active Substance: CALCIUM
  18. RANITIDINE [Concomitant]
     Active Substance: RANITIDINE\RANITIDINE HYDROCHLORIDE
  19. IV LASIX [Concomitant]
  20. THIAMINE. [Concomitant]
     Active Substance: THIAMINE
  21. ZOFRAN [Concomitant]
     Active Substance: ONDANSETRON HYDROCHLORIDE
  22. BUMETANIDE. [Concomitant]
     Active Substance: BUMETANIDE
  23. MIRALAX [Concomitant]
     Active Substance: POLYETHYLENE GLYCOL 3350

REACTIONS (6)
  - Nausea [None]
  - Abdominal distension [None]
  - Lethargy [None]
  - Mental status changes [None]
  - Somnolence [None]
  - Urinary tract infection [None]

NARRATIVE: CASE EVENT DATE: 20150307
